FAERS Safety Report 5011442-8 (Version None)
Quarter: 2006Q2

REPORT INFORMATION
  Report Type: 
  Country: None (occurrence: None)
  Receive Date: 20060404
  Receipt Date: 20051107
  Transmission Date: 20061013
  Serious: No
  Sender: FDA-Public Use
  Company Number: US_0511123644

PATIENT
  Age: 26 Year
  Sex: Male

DRUGS (3)
  1. CYMBALTA [Suspect]
     Indication: HOMOSEXUALITY
     Dosage: 300 MG
     Dates: start: 20040907
  2. XANAX [Concomitant]
  3. ATIVAN [Concomitant]

REACTIONS (2)
  - DEPRESSED MOOD [None]
  - PRESCRIBED OVERDOSE [None]
